FAERS Safety Report 8949610 (Version 1)
Quarter: 2012Q4

REPORT INFORMATION
  Report Type: Report from Study
  Country: US (occurrence: US)
  Receive Date: 20121206
  Receipt Date: 20121206
  Transmission Date: 20130627
  Serious: Yes (Other)
  Sender: FDA-Public Use
  Company Number: US-JNJFOC-20121115084

PATIENT
  Age: 65 Year
  Sex: Male
  Weight: 111.13 kg

DRUGS (1)
  1. STELARA [Suspect]
     Indication: PSORIATIC ARTHROPATHY
     Route: 058
     Dates: start: 201202

REACTIONS (1)
  - Impetigo [Recovered/Resolved]
